FAERS Safety Report 5732496-7 (Version None)
Quarter: 2008Q2

REPORT INFORMATION
  Report Type: 
  Country: None (occurrence: None)
  Receive Date: 20080508
  Receipt Date: 20080501
  Transmission Date: 20081010
  Serious: Yes (Hospitalization, Disabling, Other)
  Sender: FDA-Public Use
  Company Number: US-MERCK-0606USA05665

PATIENT
  Age: 53 Year
  Sex: Female

DRUGS (19)
  1. FOSAMAX [Suspect]
     Indication: OSTEOPOROSIS
     Route: 048
     Dates: start: 19961009, end: 20060520
  2. FLOVENT [Concomitant]
  3. ALBUTEROL [Concomitant]
  4. ACCOLATE [Concomitant]
     Route: 048
  5. WELCHOL [Concomitant]
     Indication: HYPERLIPIDAEMIA
     Route: 048
  6. ELAVIL [Concomitant]
     Indication: INSOMNIA
     Route: 065
  7. ATROVENT [Concomitant]
  8. CLARITIN [Concomitant]
     Route: 065
  9. ADALAT [Concomitant]
     Route: 065
  10. NAPROSYN [Concomitant]
     Indication: ARTHRITIS
     Route: 065
  11. HUMIBID L.A. [Concomitant]
     Route: 048
  12. LOPID [Concomitant]
     Route: 048
  13. SEREVENT [Concomitant]
     Route: 065
  14. ZYBAN [Concomitant]
     Route: 065
  15. VOLTAREN [Concomitant]
     Route: 065
     Dates: start: 20000928
  16. VITAMINS (UNSPECIFIED) [Concomitant]
     Route: 065
     Dates: start: 19990101
  17. CALTRATE + D [Concomitant]
     Route: 065
     Dates: start: 19990101
  18. VITAMIN E [Concomitant]
     Route: 065
  19. GINKGO [Concomitant]
     Route: 065

REACTIONS (37)
  - ABSCESS [None]
  - ASTHMA [None]
  - BLOOD CREATINE PHOSPHOKINASE INCREASED [None]
  - BRONCHITIS [None]
  - BURSITIS [None]
  - CHEST DISCOMFORT [None]
  - CHRONIC SINUSITIS [None]
  - COLONIC POLYP [None]
  - CONSTIPATION [None]
  - CYSTOCELE [None]
  - DEPRESSION [None]
  - DERMAL CYST [None]
  - DIVERTICULUM INTESTINAL [None]
  - FALL [None]
  - HAEMORRHOIDAL HAEMORRHAGE [None]
  - HEADACHE [None]
  - HEPATOMEGALY [None]
  - JOINT SPRAIN [None]
  - MEMORY IMPAIRMENT [None]
  - METABOLIC DISORDER [None]
  - MYALGIA [None]
  - NAIL DYSTROPHY [None]
  - NECK PAIN [None]
  - ORAL INFECTION [None]
  - OSTEOARTHRITIS [None]
  - OSTEONECROSIS [None]
  - PARAESTHESIA [None]
  - PERIODONTITIS [None]
  - POLLAKIURIA [None]
  - PRURITUS GENERALISED [None]
  - RECTAL POLYP [None]
  - ROSACEA [None]
  - ROTATOR CUFF SYNDROME [None]
  - SENSORY LEVEL ABNORMAL [None]
  - TENDON RUPTURE [None]
  - URINARY INCONTINENCE [None]
  - URTICARIA [None]
